FAERS Safety Report 15807842 (Version 2)
Quarter: 2019Q1

REPORT INFORMATION
  Report Type: Spontaneous
  Country: CA (occurrence: CA)
  Receive Date: 20190110
  Receipt Date: 20190123
  Transmission Date: 20190417
  Serious: Yes (Death)
  Sender: FDA-Public Use
  Company Number: CA-PFIZER INC-2019013815

PATIENT
  Age: 72 Year
  Sex: Male

DRUGS (3)
  1. SUTENT [Suspect]
     Active Substance: SUNITINIB MALATE
     Indication: METASTATIC NEOPLASM
     Dosage: 50 MG, UNK
     Dates: start: 20180102
  2. CAPECITABINE. [Suspect]
     Active Substance: CAPECITABINE
     Indication: METASTATIC NEOPLASM
     Dosage: UNK
  3. TEMOZOLOMIDE. [Suspect]
     Active Substance: TEMOZOLOMIDE
     Indication: METASTATIC NEOPLASM
     Dosage: UNK

REACTIONS (2)
  - Neoplasm progression [Fatal]
  - Hepatic failure [Fatal]

NARRATIVE: CASE EVENT DATE: 20181215
